FAERS Safety Report 4578309-0 (Version None)
Quarter: 2005Q1

REPORT INFORMATION
  Report Type: 
  Country: None (occurrence: None)
  Receive Date: 20050209
  Receipt Date: 20050129
  Transmission Date: 20050727
  Serious: Yes (Other)
  Sender: FDA-Public Use
  Company Number: K200500173

PATIENT
  Age: 57 Year
  Sex: Female
  Weight: 91.6 kg

DRUGS (6)
  1. LEVOXYL [Suspect]
     Indication: HYPOTHYROIDISM
     Dosage: 50 MCG, UNK; ORAL
     Route: 048
     Dates: start: 20040701, end: 20050101
  2. VITAMINS [Concomitant]
  3. LIPITOR/NET (ATORVASTATIN CALCIUM) [Concomitant]
  4. ESTRATEST [Concomitant]
  5. ACTONEL [Concomitant]
  6. OMEPRAZOLE [Concomitant]

REACTIONS (2)
  - FOREIGN BODY TRAUMA [None]
  - RETCHING [None]
